FAERS Safety Report 4815751-4 (Version None)
Quarter: 2005Q4

REPORT INFORMATION
  Report Type: 
  Country: None (occurrence: None)
  Receive Date: 20051031
  Receipt Date: 20051024
  Transmission Date: 20060501
  Serious: Yes (Life-Threatening)
  Sender: FDA-Public Use
  Company Number: 2005AC01683

PATIENT
  Age: 57 Year
  Sex: Female

DRUGS (8)
  1. CANDESARTAN CILEXETIL [Suspect]
     Indication: HYPERTENSION
  2. CANDESARTAN CILEXETIL [Interacting]
     Dosage: DRUG RE-STARTED AFTER TWO WEEK WASHOUT
  3. SPIRONOLACTONE [Interacting]
     Indication: PROTEINURIA
  4. SPIRONOLACTONE [Interacting]
     Indication: PROPHYLAXIS
  5. METOPROLOL TARTRATE [Concomitant]
  6. AMLODIPINE BESYLATE [Concomitant]
  7. DOXAZOSIN MESYLATE [Concomitant]
     Dosage: TEMPORARILY STOPPED AND RE-STARTED AFTER A TWO WEEK WASHOUT
  8. DOXAZOSIN MESYLATE [Concomitant]
     Dosage: TEMPORARILY STOPPED AND RE-STARTED AFTER A TWO WEEK WASHOUT

REACTIONS (10)
  - BLOOD CREATININE INCREASED [None]
  - BLOOD UREA INCREASED [None]
  - BRADYCARDIA [None]
  - DISORIENTATION [None]
  - DRUG INTERACTION [None]
  - FATIGUE [None]
  - HYPERKALAEMIA [None]
  - MUSCULAR WEAKNESS [None]
  - PERIPHERAL COLDNESS [None]
  - SINOATRIAL BLOCK [None]
